FAERS Safety Report 9828551 (Version 1)
Quarter: 2014Q1

REPORT INFORMATION
  Report Type: Spontaneous
  Country: AT (occurrence: AT)
  Receive Date: 20140117
  Receipt Date: 20140117
  Transmission Date: 20141002
  Serious: Yes (Hospitalization)
  Sender: FDA-Public Use
  Company Number: AT-MALLINCKRODT-T201400010

PATIENT
  Age: 78 Year
  Sex: Female
  Weight: 95 kg

DRUGS (6)
  1. OPTIRAY [Suspect]
     Indication: COMPUTERISED TOMOGRAM ABDOMEN
     Dosage: UNK, SINGLE
     Route: 065
     Dates: start: 20130523, end: 20130523
  2. OPTIRAY [Suspect]
     Dosage: UNK, SINGLE
     Route: 065
     Dates: start: 20130507, end: 20130507
  3. EUTHYROX [Concomitant]
     Dosage: 125 ?G , 1-0-0
  4. THROMBO ASS [Concomitant]
     Dosage: 0-1-0
  5. RAMICOMP [Concomitant]
     Dosage: 1-0-1
  6. DILATREND [Concomitant]
     Dosage: 25 MG, 0.5-0-0.5

REACTIONS (2)
  - Drug reaction with eosinophilia and systemic symptoms [Recovered/Resolved]
  - Drug eruption [Recovered/Resolved]
